FAERS Safety Report 9135195 (Version 15)
Quarter: 2016Q2

REPORT INFORMATION
  Report Type: Report from Study
  Country: BR (occurrence: BR)
  Receive Date: 20130304
  Receipt Date: 20160503
  Transmission Date: 20160815
  Serious: Yes (Life-Threatening, Hospitalization, Other)
  Sender: FDA-Public Use
  Company Number: PHHY2013BR020036

PATIENT
  Age: 41 Year
  Sex: Male
  Weight: 110 kg

DRUGS (15)
  1. DEPOSTERON 30 [Concomitant]
     Indication: HORMONE REPLACEMENT THERAPY
     Dosage: 1 DF, QMO
     Route: 030
     Dates: start: 200006
  2. SIMVASTATIN. [Concomitant]
     Active Substance: SIMVASTATIN
     Indication: PRODUCT USED FOR UNKNOWN INDICATION
     Dosage: 1 DF, QMO
     Route: 030
  3. SANDOSTATIN LAR DEPOT [Suspect]
     Active Substance: OCTREOTIDE ACETATE
     Dosage: 30 MG, QMO
     Route: 030
     Dates: start: 2000
  4. SANDOSTATIN LAR DEPOT [Suspect]
     Active Substance: OCTREOTIDE ACETATE
     Indication: ACROMEGALY
     Dosage: 10 MG, QMO
     Route: 030
     Dates: start: 200006, end: 2000
  5. CARBAMAZEPINE. [Concomitant]
     Active Substance: CARBAMAZEPINE
     Dosage: 3 DF, QD
     Route: 048
     Dates: start: 2000
  6. AMLODIPINE [Concomitant]
     Active Substance: AMLODIPINE BESYLATE
     Indication: BLOOD PRESSURE ABNORMAL
     Dosage: 40 MG, QD
     Route: 048
     Dates: start: 201207
  7. CARBAMAZEPINE. [Concomitant]
     Active Substance: CARBAMAZEPINE
     Indication: CONVULSION PROPHYLAXIS
     Dosage: 4 DF, UNK
     Route: 065
  8. CARBAMAZEPINE. [Concomitant]
     Active Substance: CARBAMAZEPINE
     Dosage: 2 DF, QD
     Route: 065
  9. SANDOSTATIN LAR DEPOT [Suspect]
     Active Substance: OCTREOTIDE ACETATE
     Dosage: 20 MG, QMO
     Route: 030
     Dates: start: 2000, end: 2000
  10. OMEPRAZOLE. [Concomitant]
     Active Substance: OMEPRAZOLE
     Indication: GASTRITIS PROPHYLAXIS
     Dosage: 20 MG, QD
     Route: 048
     Dates: start: 2000
  11. AAS [Concomitant]
     Active Substance: ASPIRIN
     Indication: ANTICOAGULANT THERAPY
     Dosage: 3 DF, QD
     Route: 048
     Dates: start: 2000
  12. CARBAMAZEPINE. [Concomitant]
     Active Substance: CARBAMAZEPINE
     Indication: SYNCOPE
     Dosage: 3 DF, QD
     Route: 065
  13. PURAN [Concomitant]
     Active Substance: LEVOTHYROXINE SODIUM
     Indication: THYROID DISORDER
     Dosage: 1.5 DF, QD
     Route: 048
     Dates: start: 2000
  14. SIMVASTATIN. [Concomitant]
     Active Substance: SIMVASTATIN
     Dosage: 1 DF, QD
     Route: 065
     Dates: start: 201207
  15. PREDNISONE. [Concomitant]
     Active Substance: PREDNISONE
     Indication: THYROID DISORDER
     Dosage: 1.5 DF, QD
     Route: 048

REACTIONS (43)
  - Somnolence [Unknown]
  - Dizziness [Unknown]
  - Dyspnoea [Unknown]
  - Cardiomegaly [Recovered/Resolved]
  - Blood growth hormone decreased [Recovered/Resolved]
  - Movement disorder [Recovering/Resolving]
  - Pyrexia [Recovering/Resolving]
  - Gait disturbance [Unknown]
  - Hand deformity [Unknown]
  - Fall [Unknown]
  - Decreased appetite [Unknown]
  - Balance disorder [Recovered/Resolved]
  - Face injury [Unknown]
  - Tracheostomy infection [Recovering/Resolving]
  - Asthenia [Not Recovered/Not Resolved]
  - Malaise [Recovering/Resolving]
  - Kyphosis [Unknown]
  - Abasia [Recovering/Resolving]
  - Dysphagia [Recovering/Resolving]
  - Dysstasia [Recovered/Resolved]
  - Aphasia [Recovering/Resolving]
  - Drug ineffective [Recovering/Resolving]
  - Blood cholesterol increased [Recovering/Resolving]
  - Weight decreased [Unknown]
  - Cholelithiasis [Recovering/Resolving]
  - Muscular weakness [Recovering/Resolving]
  - Weight increased [Unknown]
  - Needle issue [Unknown]
  - Speech disorder [Unknown]
  - Seizure [Recovered/Resolved]
  - Infection [Recovering/Resolving]
  - Paralysis [Recovering/Resolving]
  - Blood pressure increased [Recovering/Resolving]
  - Choking [Unknown]
  - Hyperhidrosis [Recovering/Resolving]
  - Limb deformity [Unknown]
  - Vomiting [Recovering/Resolving]
  - Coma [Recovering/Resolving]
  - Cerebral ischaemia [Recovering/Resolving]
  - Cerebrovascular accident [Recovered/Resolved]
  - Ischaemia [Unknown]
  - Musculoskeletal stiffness [Recovering/Resolving]
  - Hypersomnia [Unknown]

NARRATIVE: CASE EVENT DATE: 2004
